FAERS Safety Report 4567644-8 (Version None)
Quarter: 2005Q1

REPORT INFORMATION
  Report Type: 
  Country: None (occurrence: None)
  Receive Date: 20050110
  Receipt Date: 20050110
  Transmission Date: 20050727
  Serious: Yes (Other)
  Sender: FDA-Public Use
  Company Number: None

PATIENT
  Sex: Female

DRUGS (1)
  1. TRAZODONE [Suspect]
     Indication: DYSTHYMIC DISORDER
     Dosage: 150 MG 1 2/3 HS PT'SD. CHRONIC
     Dates: start: 20040920, end: 20040922

REACTIONS (6)
  - DRY EYE [None]
  - DRY THROAT [None]
  - DYSPNOEA [None]
  - EAR PAIN [None]
  - EYE PAIN [None]
  - THERAPEUTIC PRODUCT INEFFECTIVE [None]
